FAERS Safety Report 17170403 (Version 2)
Quarter: 2019Q4

REPORT INFORMATION
  Report Type: Spontaneous
  Country: HR (occurrence: HR)
  Receive Date: 20191218
  Receipt Date: 20191224
  Transmission Date: 20200122
  Serious: Yes (Death, Hospitalization)
  Sender: FDA-Public Use
  Company Number: HR-PFIZER INC-2019540835

PATIENT
  Age: 65 Year
  Sex: Female

DRUGS (3)
  1. CYTARABINE. [Suspect]
     Active Substance: CYTARABINE
     Dosage: SCHEME 3+7
  2. CYTARABINE. [Suspect]
     Active Substance: CYTARABINE
     Indication: ACUTE MYELOID LEUKAEMIA
     Dosage: LOW DOSE, CYCLIC (3 CYCLES)
     Dates: start: 2015
  3. DAUNOBLASTIN [Suspect]
     Active Substance: DAUNORUBICIN HYDROCHLORIDE
     Indication: ACUTE MYELOID LEUKAEMIA
     Dosage: SCHEME 3+7
     Dates: start: 2015

REACTIONS (6)
  - Pyrexia [Unknown]
  - Febrile neutropenia [Unknown]
  - Enterococcal infection [Not Recovered/Not Resolved]
  - Femur fracture [Unknown]
  - Pneumonia [Unknown]
  - Clostridium difficile colitis [Fatal]

NARRATIVE: CASE EVENT DATE: 201704
